FAERS Safety Report 4622401-9 (Version None)
Quarter: 2005Q1

REPORT INFORMATION
  Report Type: 
  Country: None (occurrence: None)
  Receive Date: 20050317
  Receipt Date: 20040203
  Transmission Date: 20050727
  Serious: Yes (Hospitalization)
  Sender: FDA-Public Use
  Company Number: PHEH2004US01589

PATIENT
  Sex: Female

DRUGS (1)
  1. TRILEPTAL [Suspect]
     Dosage: 600 MG BID ORAL
     Route: 048

REACTIONS (3)
  - HYPONATRAEMIA [None]
  - MENTAL STATUS CHANGES [None]
  - URINARY TRACT INFECTION [None]
